FAERS Safety Report 5099710-5 (Version None)
Quarter: 2006Q3

REPORT INFORMATION
  Report Type: 
  Country: None (occurrence: None)
  Receive Date: 20060908
  Receipt Date: 20060830
  Transmission Date: 20061208
  Serious: Yes (Other)
  Sender: FDA-Public Use
  Company Number: US-GLAXOSMITHKLINE-A0618636A

PATIENT
  Age: 45 Year
  Sex: Female

DRUGS (5)
  1. ADVAIR DISKUS 100/50 [Suspect]
     Indication: ASTHMA
     Route: 055
     Dates: end: 20060830
  2. PREVACID [Concomitant]
  3. CELEXA [Concomitant]
  4. ULTRACET [Concomitant]
  5. MAXAIR [Concomitant]

REACTIONS (6)
  - ASTHMA [None]
  - FEELING JITTERY [None]
  - MEDICATION ERROR [None]
  - OVERDOSE [None]
  - TACHYCARDIA [None]
  - TREMOR [None]
